FAERS Safety Report 10046996 (Version 1)
Quarter: 2014Q1

REPORT INFORMATION
  Report Type: Spontaneous
  Country: DE (occurrence: DE)
  Receive Date: 20140331
  Receipt Date: 20140331
  Transmission Date: 20141002
  Serious: Yes (Other)
  Sender: FDA-Public Use
  Company Number: PHHY2014DE038361

PATIENT
  Sex: Male

DRUGS (2)
  1. LOCOL [Suspect]
     Dosage: 80 MG, UNK
     Route: 048
  2. LOCOL [Suspect]
     Dosage: 80 MG, BID
     Route: 048

REACTIONS (2)
  - Umbilical hernia [Unknown]
  - Overdose [Unknown]
